FAERS Safety Report 8854446 (Version 1)
Quarter: 2012Q4

REPORT INFORMATION
  Report Type: 
  Country: US (occurrence: US)
  Receive Date: 20121023
  Receipt Date: 20121023
  Transmission Date: 20130627
  Serious: Yes (Hospitalization)
  Sender: FDA-Public Use
  Company Number: US-ROCHE-1127429

PATIENT
  Age: 89 Year
  Sex: Female
  Weight: 59.02 kg

DRUGS (1)
  1. ERIVEDGE [Suspect]
     Indication: BASAL CELL CARCINOMA
     Route: 048
     Dates: start: 201208, end: 20120912

REACTIONS (6)
  - Rash [Unknown]
  - Body temperature increased [Unknown]
  - Blood pressure increased [Unknown]
  - Hypertension [Recovered/Resolved]
  - Flushing [Recovered/Resolved]
  - Skin burning sensation [Recovered/Resolved]
